FAERS Safety Report 24375409 (Version 4)
Quarter: 2025Q1

REPORT INFORMATION
  Report Type: Spontaneous
  Country: JP (occurrence: JP)
  Receive Date: 20240928
  Receipt Date: 20250312
  Transmission Date: 20250409
  Serious: Yes (Life-Threatening, Hospitalization, Disabling)
  Sender: ABBVIE
  Company Number: JP-ABBVIE-5939901

PATIENT
  Age: 67 Year
  Sex: Female
  Weight: 44 kg

DRUGS (8)
  1. RINVOQ [Suspect]
     Active Substance: UPADACITINIB
     Indication: Colitis ulcerative
     Dosage: FORM STRENGTH: 45 MILLIGRAM
     Route: 048
     Dates: start: 20230906, end: 20231219
  2. RINVOQ [Suspect]
     Active Substance: UPADACITINIB
     Indication: Colitis ulcerative
     Dosage: FORM STRENGTH:15 MILLIGRAM
     Route: 048
     Dates: start: 20231220, end: 20240124
  3. SIMVASTATIN [Concomitant]
     Active Substance: SIMVASTATIN
     Indication: Hyperlipidaemia
     Dosage: FORM STRENGTH:10 MILLIGRAM
     Route: 048
  4. TEPRENONE [Concomitant]
     Active Substance: TEPRENONE
     Indication: Chronic gastritis
     Route: 048
  5. BREXPIPRAZOLE [Concomitant]
     Active Substance: BREXPIPRAZOLE
     Indication: Anxiety disorder
     Dosage: FORM STRENGTH: 2 MILLIGRAM
     Route: 048
  6. CLOXAZOLAM [Concomitant]
     Active Substance: CLOXAZOLAM
     Indication: Anxiety disorder
     Dosage: FORM STRENGTH: 1 MILLIGRAM
     Route: 048
  7. MESALAMINE [Concomitant]
     Active Substance: MESALAMINE
     Indication: Colitis ulcerative
     Dosage: 4.24 GRAM, FORM STRENGTH: 94 PERCENT
     Route: 048
     Dates: start: 20221101
  8. TOFACITINIB [Concomitant]
     Active Substance: TOFACITINIB
     Indication: Product used for unknown indication

REACTIONS (3)
  - Disseminated tuberculosis [Unknown]
  - Pain [Unknown]
  - Granuloma [Unknown]

NARRATIVE: CASE EVENT DATE: 20240110
